FAERS Safety Report 5309063-2 (Version None)
Quarter: 2007Q2

REPORT INFORMATION
  Report Type: 
  Country: None (occurrence: None)
  Receive Date: 20070420
  Receipt Date: 20070405
  Transmission Date: 20071010
  Serious: Yes (Hospitalization)
  Sender: FDA-Public Use
  Company Number: S06-UKI-05173-01

PATIENT
  Age: 49 Year
  Sex: Female

DRUGS (10)
  1. ESCITALOPRAM [Suspect]
     Indication: DEPRESSION
     Dosage: 20 MG QD PO
     Route: 048
     Dates: start: 20061003, end: 20061122
  2. ESCITALOPRAM [Suspect]
     Indication: DEPRESSION
     Dosage: 10 MG QD PO
     Route: 048
     Dates: start: 20030124, end: 20061003
  3. ISPAGHULA HUSK SACHETS (ISPAGHULA HUSK) [Concomitant]
  4. LACTULOSE SOLUTION (LACTULOSE) [Concomitant]
  5. DICLOFENAC WITH MISOPROSTOL (GALENIC /MISOPROSTOL/DICLOFENAC SODIUM) [Concomitant]
  6. CO-DYDRAMOL [Concomitant]
  7. GAVISCON [Concomitant]
  8. LEVOTHYROXINE SODIUM [Concomitant]
  9. GABAPENTIN CAPSULES (GABAPENTIN) [Concomitant]
  10. RISPERIDONE [Concomitant]

REACTIONS (2)
  - ACUTE PSYCHOSIS [None]
  - MANIA [None]
